FAERS Safety Report 4777066-2 (Version None)
Quarter: 2005Q3

REPORT INFORMATION
  Report Type: 
  Country: None (occurrence: None)
  Receive Date: 20050922
  Receipt Date: 20050922
  Transmission Date: 20060218
  Serious: Yes (Hospitalization, Disabling)
  Sender: FDA-Public Use
  Company Number: None

PATIENT
  Age: 51 Year
  Sex: Female
  Weight: 108.5 kg

DRUGS (6)
  1. SIMVASTATIN [Suspect]
     Indication: HYPERLIPIDAEMIA
     Dosage: 80 MG DAILY PO
     Route: 048
  2. NAPROSYN [Concomitant]
  3. HYDROCHLOROTHIAZIDE [Concomitant]
  4. ATENOLOL [Concomitant]
  5. SEPTRA [Concomitant]
  6. AZITHROMYCIN [Concomitant]

REACTIONS (7)
  - BLOOD URINE [None]
  - DEHYDRATION [None]
  - HAEMODIALYSIS [None]
  - RHABDOMYOLYSIS [None]
  - UPPER RESPIRATORY TRACT CONGESTION [None]
  - UPPER RESPIRATORY TRACT INFECTION [None]
  - VIRAL INFECTION [None]
